FAERS Safety Report 5387397-3 (Version None)
Quarter: 2007Q3

REPORT INFORMATION
  Report Type: 
  Country: None (occurrence: None)
  Receive Date: 20070716
  Receipt Date: 20070711
  Transmission Date: 20080115
  Serious: Yes (Other)
  Sender: FDA-Public Use
  Company Number: US-BAYER-200711704BCC

PATIENT
  Age: 45 Year
  Sex: Female
  Weight: 100 kg

DRUGS (1)
  1. ASPIRIN [Suspect]
     Indication: PAIN
     Route: 048

REACTIONS (5)
  - CEREBROVASCULAR ACCIDENT [None]
  - DIZZINESS [None]
  - FEELING HOT [None]
  - HYPOAESTHESIA [None]
  - VISION BLURRED [None]
